FAERS Safety Report 15680256 (Version 1)
Quarter: 2018Q4

REPORT INFORMATION
  Report Type: Spontaneous
  Country: BR (occurrence: BR)
  Receive Date: 20181203
  Receipt Date: 20181203
  Transmission Date: 20190205
  Serious: Yes (Death, Hospitalization, Other)
  Sender: FDA-Public Use
  Company Number: BR-AMGEN-BRASP2018170628

PATIENT
  Age: 34 Year
  Sex: Female
  Weight: 52 kg

DRUGS (23)
  1. MORPHINE [Concomitant]
     Active Substance: MORPHINE
     Dosage: UNK
  2. FAULDVINCRI [Concomitant]
     Active Substance: VINCRISTINE SULFATE
     Indication: SOFT TISSUE SARCOMA
  3. ETOPOSIDE. [Concomitant]
     Active Substance: ETOPOSIDE
     Indication: DESMOPLASTIC SMALL ROUND CELL TUMOUR
  4. NEULASTIM [Suspect]
     Active Substance: PEGFILGRASTIM
     Indication: PRODUCT USED FOR UNKNOWN INDICATION
     Dosage: 6 MG, AFTER CHEMO
     Route: 058
     Dates: start: 20180315
  5. FAULDOXO [Concomitant]
     Active Substance: DOXORUBICIN HYDROCHLORIDE
     Indication: SOFT TISSUE SARCOMA
  6. FAULDOXO [Concomitant]
     Active Substance: DOXORUBICIN HYDROCHLORIDE
     Indication: DESMOPLASTIC SMALL ROUND CELL TUMOUR
  7. FAULDVINCRI [Concomitant]
     Active Substance: VINCRISTINE SULFATE
     Indication: MALIGNANT CONNECTIVE TISSUE NEOPLASM
     Dosage: 2 MG, Q3WK (5 CYCLES)
     Route: 042
     Dates: start: 20180314, end: 201805
  8. GEMCITABINE [Concomitant]
     Active Substance: GEMCITABINE\GEMCITABINE HYDROCHLORIDE
     Indication: DESMOPLASTIC SMALL ROUND CELL TUMOUR
  9. IFOSFAMIDE. [Concomitant]
     Active Substance: IFOSFAMIDE
     Indication: DESMOPLASTIC SMALL ROUND CELL TUMOUR
  10. GENUXAL [Concomitant]
     Active Substance: CYCLOPHOSPHAMIDE
     Indication: MALIGNANT CONNECTIVE TISSUE NEOPLASM
     Dosage: UNK UNK, Q3WK (5 CYCLES)
     Route: 042
     Dates: start: 20180314, end: 201805
  11. GENUXAL [Concomitant]
     Active Substance: CYCLOPHOSPHAMIDE
     Indication: SOFT TISSUE SARCOMA
  12. IFOSFAMIDE. [Concomitant]
     Active Substance: IFOSFAMIDE
     Indication: SOFT TISSUE SARCOMA
  13. GENUXAL [Concomitant]
     Active Substance: CYCLOPHOSPHAMIDE
     Indication: DESMOPLASTIC SMALL ROUND CELL TUMOUR
  14. FAULDOXO [Concomitant]
     Active Substance: DOXORUBICIN HYDROCHLORIDE
     Indication: MALIGNANT CONNECTIVE TISSUE NEOPLASM
     Dosage: 116.925 MG, Q3WK (5 CYCLES)
     Route: 042
     Dates: start: 20180314, end: 201805
  15. IFOSFAMIDE. [Concomitant]
     Active Substance: IFOSFAMIDE
     Indication: MALIGNANT CONNECTIVE TISSUE NEOPLASM
     Dosage: UNK
     Dates: start: 20180522, end: 20180619
  16. NOVALGIN (METAMIZOLE SODIUM) [Concomitant]
     Active Substance: METAMIZOLE SODIUM
     Dosage: UNK
  17. OMEPRAZOLE. [Concomitant]
     Active Substance: OMEPRAZOLE
     Dosage: UNK
  18. FAULDVINCRI [Concomitant]
     Active Substance: VINCRISTINE SULFATE
     Indication: DESMOPLASTIC SMALL ROUND CELL TUMOUR
  19. ETOPOSIDE. [Concomitant]
     Active Substance: ETOPOSIDE
     Indication: MALIGNANT CONNECTIVE TISSUE NEOPLASM
     Dosage: UNK
     Dates: start: 20180522, end: 20180619
  20. GEMCITABINE [Concomitant]
     Active Substance: GEMCITABINE\GEMCITABINE HYDROCHLORIDE
     Indication: MALIGNANT CONNECTIVE TISSUE NEOPLASM
     Dosage: UNK
     Dates: start: 20180717
  21. GEMCITABINE [Concomitant]
     Active Substance: GEMCITABINE\GEMCITABINE HYDROCHLORIDE
     Indication: SOFT TISSUE SARCOMA
  22. BROMOPRIDE [Concomitant]
     Active Substance: BROMOPRIDE
     Dosage: UNK
  23. ETOPOSIDE. [Concomitant]
     Active Substance: ETOPOSIDE
     Indication: SOFT TISSUE SARCOMA

REACTIONS (2)
  - Febrile neutropenia [Recovered/Resolved]
  - Disease progression [Fatal]

NARRATIVE: CASE EVENT DATE: 201805
